FAERS Safety Report 9515719 (Version 1)
Quarter: 2013Q3

REPORT INFORMATION
  Report Type: Spontaneous
  Country: US (occurrence: US)
  Receive Date: 20130911
  Receipt Date: 20130911
  Transmission Date: 20140515
  Serious: Yes (Hospitalization, Other)
  Sender: FDA-Public Use
  Company Number: US-SANOFI-AVENTIS-2013SA089398

PATIENT
  Age: 60 Year
  Sex: Male
  Weight: 103 kg

DRUGS (4)
  1. LOVENOX [Suspect]
     Indication: ANTICOAGULANT THERAPY
     Route: 051
  2. LOVENOX [Suspect]
     Indication: VENOUS INSUFFICIENCY
     Route: 051
  3. LOVENOX [Suspect]
     Indication: PULMONARY EMBOLISM
     Route: 051
  4. LOVENOX [Suspect]
     Indication: THROMBOSIS
     Route: 051

REACTIONS (11)
  - Pulmonary embolism [Not Recovered/Not Resolved]
  - Atrial fibrillation [Not Recovered/Not Resolved]
  - Ischaemia [Not Recovered/Not Resolved]
  - Cerebellar ataxia [Not Recovered/Not Resolved]
  - Vascular dementia [Not Recovered/Not Resolved]
  - Embolism [Not Recovered/Not Resolved]
  - Thrombosis [Not Recovered/Not Resolved]
  - Pulmonary hypertension [Not Recovered/Not Resolved]
  - Nerve injury [Not Recovered/Not Resolved]
  - Tremor [Not Recovered/Not Resolved]
  - Polyneuropathy [Not Recovered/Not Resolved]
